FAERS Safety Report 12070063 (Version 3)
Quarter: 2016Q4

REPORT INFORMATION
  Report Type: Report from Study
  Country: US (occurrence: US)
  Receive Date: 20160211
  Receipt Date: 20161109
  Transmission Date: 20170206
  Serious: Yes (Death, Hospitalization)
  Sender: FDA-Public Use
  Company Number: US-BAYER-2015-474785

PATIENT
  Age: 59 Year
  Sex: Female

DRUGS (4)
  1. NEXAVAR [Suspect]
     Active Substance: SORAFENIB
     Indication: HEPATIC CANCER
     Dosage: 200 MG, QD
     Route: 048
     Dates: start: 201512
  2. NEXAVAR [Suspect]
     Active Substance: SORAFENIB
     Indication: LIVER DISORDER
     Dosage: 400 MG, BID
     Route: 048
     Dates: start: 20151113, end: 20151116
  3. NEXAVAR [Suspect]
     Active Substance: SORAFENIB
     Indication: LIVER DISORDER
     Dosage: 200 MG, QD
     Route: 048
     Dates: end: 201611
  4. NEXAVAR [Suspect]
     Active Substance: SORAFENIB
     Indication: LIVER DISORDER
     Dosage: 800 (4X200) MG, QD
     Route: 048

REACTIONS (8)
  - Sepsis [Unknown]
  - Nervousness [Recovered/Resolved]
  - Abdominal pain [Not Recovered/Not Resolved]
  - Death [Fatal]
  - Urinary tract infection [Unknown]
  - Hospitalisation [None]
  - Nausea [Not Recovered/Not Resolved]
  - Diarrhoea [Not Recovered/Not Resolved]

NARRATIVE: CASE EVENT DATE: 20151114
